FAERS Safety Report 15706125 (Version 2)
Quarter: 2019Q2

REPORT INFORMATION
  Report Type: Report from Study
  Country: US (occurrence: US)
  Receive Date: 20181210
  Receipt Date: 20190624
  Transmission Date: 20190711
  Serious: Yes (Hospitalization, Other)
  Sender: FDA-Public Use
  Company Number: US-SHIRE-US201846859

PATIENT
  Age: 72 Year
  Sex: Female

DRUGS (1)
  1. GATTEX [Suspect]
     Active Substance: TEDUGLUTIDE\WATER
     Indication: SHORT-BOWEL SYNDROME
     Dosage: 1.4 MILLIGRAM, 1X/DAY:QD
     Route: 058
     Dates: start: 20180630

REACTIONS (4)
  - Ageusia [Not Recovered/Not Resolved]
  - Hospitalisation [Unknown]
  - Anosmia [Not Recovered/Not Resolved]
  - Product dose omission [Unknown]

NARRATIVE: CASE EVENT DATE: 20181001
